FAERS Safety Report 25590562 (Version 1)
Quarter: 2025Q3

REPORT INFORMATION
  Report Type: Spontaneous
  Country: US (occurrence: US)
  Receive Date: 20250722
  Receipt Date: 20250722
  Transmission Date: 20251020
  Serious: Yes (Life-Threatening, Hospitalization, Other)
  Sender: Norvium Bioscience
  Company Number: US-Norvium Bioscience LLC-080421

PATIENT
  Age: 3 Year
  Sex: Female

DRUGS (1)
  1. GUANFACINE [Suspect]
     Active Substance: GUANFACINE
     Indication: Accidental exposure to product

REACTIONS (4)
  - Unresponsive to stimuli [Recovered/Resolved]
  - Hypertensive encephalopathy [Recovered/Resolved]
  - Bradypnoea [Recovered/Resolved]
  - Overdose [Unknown]
